FAERS Safety Report 8460769-6 (Version None)
Quarter: 2012Q2

REPORT INFORMATION
  Report Type: 
  Country: None (occurrence: None)
  Receive Date: 20120622
  Receipt Date: 20120618
  Transmission Date: 20120825
  Serious: Yes (Other)
  Sender: FDA-Public Use
  Company Number: US-AMGEN-USASP2012025446

PATIENT
  Sex: Male
  Weight: 4.268 kg

DRUGS (3)
  1. PRENATAL VITAMINS                  /02014401/ [Concomitant]
     Dosage: UNK
     Route: 064
     Dates: start: 20040101
  2. ENBREL [Suspect]
     Dosage: 50 MG, QWK
     Route: 064
     Dates: start: 20120101
  3. ENBREL [Suspect]
     Dosage: 50 MG, QWK
     Route: 064
     Dates: start: 20081101, end: 20101201

REACTIONS (5)
  - POSTMATURE BABY [None]
  - NEONATAL ASPIRATION [None]
  - MATERNAL EXPOSURE BEFORE PREGNANCY [None]
  - NEONATAL HYPOXIA [None]
  - MATERNAL DRUGS AFFECTING FOETUS [None]
